FAERS Safety Report 6096125-8 (Version None)
Quarter: 2009Q1

REPORT INFORMATION
  Report Type: 
  Country: None (occurrence: None)
  Receive Date: 20090227
  Receipt Date: 20080919
  Transmission Date: 20090719
  Serious: No
  Sender: FDA-Public Use
  Company Number: A0746775A

PATIENT
  Age: 36 Year
  Sex: Male
  Weight: 90.9 kg

DRUGS (2)
  1. LAMICTAL [Suspect]
     Indication: BIPOLAR DISORDER
     Dosage: 50MG PER DAY
     Route: 048
     Dates: end: 20080702
  2. TRAZODONE HCL [Concomitant]
     Dosage: 100MG ELEVEN TIMES PER DAY
     Route: 048

REACTIONS (1)
  - BLOOD CREATININE INCREASED [None]
